FAERS Safety Report 4823921-4 (Version None)
Quarter: 2005Q4

REPORT INFORMATION
  Report Type: 
  Country: None (occurrence: None)
  Receive Date: 20051107
  Receipt Date: 20051025
  Transmission Date: 20060501
  Serious: Yes (Other)
  Sender: FDA-Public Use
  Company Number: 2005135483

PATIENT
  Age: 60 Year
  Sex: Male

DRUGS (4)
  1. VIAGRA [Suspect]
     Indication: ILL-DEFINED DISORDER
     Dates: start: 20040801
  2. CONCERTA [Concomitant]
  3. RITALIN [Concomitant]
  4. LIPITOR [Concomitant]

REACTIONS (18)
  - ASTHENOPIA [None]
  - BLINDNESS UNILATERAL [None]
  - BLOOD CHOLESTEROL INCREASED [None]
  - BLOOD PRESSURE INCREASED [None]
  - CAROTID ARTERY ATHEROMA [None]
  - EYE PAIN [None]
  - EYELID DISORDER [None]
  - FATIGUE [None]
  - HEADACHE [None]
  - IMPAIRED DRIVING ABILITY [None]
  - LOW DENSITY LIPOPROTEIN INCREASED [None]
  - OPTIC ATROPHY [None]
  - OPTIC ISCHAEMIC NEUROPATHY [None]
  - PANIC ATTACK [None]
  - PAPILLOEDEMA [None]
  - TENDERNESS [None]
  - TENSION [None]
  - VISUAL FIELD DEFECT [None]
